FAERS Safety Report 8493428-4 (Version None)
Quarter: 2012Q3

REPORT INFORMATION
  Report Type: 
  Country: None (occurrence: None)
  Receive Date: 20120706
  Receipt Date: 20120622
  Transmission Date: 20120928
  Serious: Yes (Other)
  Sender: FDA-Public Use
  Company Number: ES-WATSON-2012-09928

PATIENT
  Age: 3 Year
  Sex: Male

DRUGS (1)
  1. TESTOSTERONE PROPIONATE [Suspect]
     Indication: HYPOGONADISM MALE
     Dosage: 25 MG/ML
     Route: 030

REACTIONS (2)
  - PENIS DISORDER [None]
  - DERMAL CYST [None]
